FAERS Safety Report 13314241 (Version 2)
Quarter: 2017Q1

REPORT INFORMATION
  Report Type: Spontaneous
  Country: US (occurrence: US)
  Receive Date: 20170309
  Receipt Date: 20170329
  Transmission Date: 20170428
  Serious: Yes (Other)
  Sender: FDA-Public Use
  Company Number: PHEH2017US006494

PATIENT
  Sex: Female

DRUGS (1)
  1. VIVELLE-DOT [Suspect]
     Active Substance: ESTRADIOL
     Indication: PRODUCT USED FOR UNKNOWN INDICATION
     Dosage: 0.025 MG, UNK
     Route: 062

REACTIONS (5)
  - Muscle spasms [Recovering/Resolving]
  - Drug dependence [Unknown]
  - Memory impairment [Unknown]
  - Feeling abnormal [Unknown]
  - Arthralgia [Recovering/Resolving]
